FAERS Safety Report 25241043 (Version 1)
Quarter: 2025Q2

REPORT INFORMATION
  Report Type: Spontaneous
  Country: FR (occurrence: FR)
  Receive Date: 20250425
  Receipt Date: 20250425
  Transmission Date: 20250717
  Serious: Yes (Hospitalization, Other)
  Sender: MYLAN
  Company Number: None

PATIENT
  Age: 17 Year

DRUGS (8)
  1. ACETAMINOPHEN [Suspect]
     Active Substance: ACETAMINOPHEN
     Indication: Product used for unknown indication
     Dates: start: 20250130, end: 20250130
  2. ACETAMINOPHEN [Suspect]
     Active Substance: ACETAMINOPHEN
     Route: 048
     Dates: start: 20250130, end: 20250130
  3. ACETAMINOPHEN [Suspect]
     Active Substance: ACETAMINOPHEN
     Route: 048
     Dates: start: 20250130, end: 20250130
  4. ACETAMINOPHEN [Suspect]
     Active Substance: ACETAMINOPHEN
     Dates: start: 20250130, end: 20250130
  5. CYAMEMAZINE [Suspect]
     Active Substance: CYAMEMAZINE
     Indication: Product used for unknown indication
     Dates: start: 20250130, end: 20250130
  6. CYAMEMAZINE [Suspect]
     Active Substance: CYAMEMAZINE
     Route: 048
     Dates: start: 20250130, end: 20250130
  7. CYAMEMAZINE [Suspect]
     Active Substance: CYAMEMAZINE
     Route: 048
     Dates: start: 20250130, end: 20250130
  8. CYAMEMAZINE [Suspect]
     Active Substance: CYAMEMAZINE
     Dates: start: 20250130, end: 20250130

REACTIONS (3)
  - Somnolence [Recovered/Resolved]
  - Vomiting [Recovered/Resolved]
  - Suicide attempt [Unknown]

NARRATIVE: CASE EVENT DATE: 20250130
